FAERS Safety Report 13815237 (Version 3)
Quarter: 2017Q3

REPORT INFORMATION
  Report Type: Report from Study
  Country: US (occurrence: US)
  Receive Date: 20170731
  Receipt Date: 20170915
  Transmission Date: 20171127
  Serious: Yes (Hospitalization, Other)
  Sender: FDA-Public Use
  Company Number: US-BIOGEN-2017BI00439007

PATIENT
  Age: 64 Year
  Sex: Female
  Weight: 77.18 kg

DRUGS (1)
  1. TECFIDERA [Suspect]
     Active Substance: DIMETHYL FUMARATE
     Indication: MULTIPLE SCLEROSIS
     Dosage: MAINTENANCE DOSE
     Route: 048
     Dates: start: 20140623

REACTIONS (2)
  - Cerebrovascular accident [Recovered/Resolved]
  - Cardiac septal defect [Not Recovered/Not Resolved]

NARRATIVE: CASE EVENT DATE: 20170725
